FAERS Safety Report 8604741-1 (Version None)
Quarter: 2012Q3

REPORT INFORMATION
  Report Type: 
  Country: None (occurrence: None)
  Receive Date: 20120808
  Receipt Date: 20120808
  Transmission Date: 20120928
  Serious: No
  Sender: FDA-Public Use
  Company Number: None

PATIENT
  Age: 49 Year
  Sex: Female
  Weight: 62.5964 kg

DRUGS (1)
  1. MONISTAT 7 [Suspect]
     Indication: VULVOVAGINAL MYCOTIC INFECTION
     Dosage: 7 DAYS X 100MG NIGHTLY VAG
     Route: 067
     Dates: start: 20120804, end: 20120806

REACTIONS (4)
  - APPLICATION SITE PAIN [None]
  - INSOMNIA [None]
  - APPLICATION SITE PRURITUS [None]
  - ACTIVITIES OF DAILY LIVING IMPAIRED [None]
